FAERS Safety Report 19421136 (Version 1)
Quarter: 2021Q2

REPORT INFORMATION
  Report Type: Spontaneous
  Country: DE (occurrence: DE)
  Receive Date: 20210615
  Receipt Date: 20210615
  Transmission Date: 20210717
  Serious: Yes (Death, Life-Threatening, Hospitalization)
  Sender: FDA-Public Use
  Company Number: DE-PFIZER INC-2021637881

PATIENT
  Age: 80 Year
  Sex: Female
  Weight: 71 kg

DRUGS (30)
  1. BISOPROLOL?RATIOPHARM [Concomitant]
     Active Substance: BISOPROLOL
     Dosage: 5 MG, QD ( STOOPED ON 12 JUN 2018 BUT ONGOING AT DISCHARGE FROM REHABILITATION
     Route: 048
     Dates: start: 20180524
  2. AMLODIPINE [Suspect]
     Active Substance: AMLODIPINE BESYLATE
     Dosage: 5 MG, 2X/DAY (8 A.M AND 6 P.M)
     Route: 048
  3. TAVOR [SIMVASTATIN] [Concomitant]
     Active Substance: SIMVASTATIN
     Route: 065
     Dates: start: 201902
  4. FUROSEMID [Concomitant]
     Active Substance: FUROSEMIDE
     Dosage: 40 MG, BID
     Route: 065
     Dates: start: 201903
  5. BISOPROLOL COMP [Concomitant]
     Active Substance: BISOPROLOL FUMARATE\HYDROCHLOROTHIAZIDE
     Route: 065
     Dates: start: 201302
  6. AMLODIPINE [Suspect]
     Active Substance: AMLODIPINE BESYLATE
     Dosage: 5 MG, 2X/DAY (8 A.M AND 6 P.M)
     Route: 048
     Dates: start: 20180523, end: 20180612
  7. L?THYROX HEXAL [Suspect]
     Active Substance: LEVOTHYROXINE SODIUM
     Dosage: UNK
     Route: 065
     Dates: start: 2014, end: 2016
  8. HYDROMORPHONE [Concomitant]
     Active Substance: HYDROMORPHONE
     Dosage: 2 MG
     Route: 065
     Dates: start: 201902
  9. HCT HEXAL [Concomitant]
     Active Substance: HYDROCHLOROTHIAZIDE
     Dosage: 25 MG, QD (HALF TABLET OF 25 MG)
     Route: 048
     Dates: start: 20180504, end: 20180524
  10. MACROGOL ABZ BALANCE [Concomitant]
     Active Substance: POLYETHYLENE GLYCOL 3350\POTASSIUM CHLORIDE\SODIUM BICARBONATE\SODIUM CHLORIDE
     Route: 065
     Dates: start: 201902
  11. DIGIMERCK MINOR [Concomitant]
     Active Substance: DIGITOXIN
     Route: 065
     Dates: start: 201901
  12. AMLODIPINE [Suspect]
     Active Substance: AMLODIPINE BESYLATE
     Dosage: 5 MG
     Route: 065
     Dates: start: 2016, end: 2017
  13. ADVITAN [Concomitant]
     Route: 065
     Dates: start: 2018
  14. PANTOPRAZOLE [Concomitant]
     Active Substance: PANTOPRAZOLE
     Dosage: 40 MG
     Route: 065
     Dates: start: 201901
  15. EUTHYROX [Concomitant]
     Active Substance: LEVOTHYROXINE SODIUM
     Route: 065
  16. MIDAZOLAM. [Concomitant]
     Active Substance: MIDAZOLAM
     Route: 065
     Dates: start: 201903
  17. VALSARTAN DURA [Suspect]
     Active Substance: VALSARTAN
     Route: 065
     Dates: start: 201702, end: 2018
  18. IBUPROFEN. [Concomitant]
     Active Substance: IBUPROFEN
     Route: 065
  19. FENTANYL CT [Concomitant]
     Route: 065
     Dates: start: 201903
  20. AMLODIPINE BESILATE [Suspect]
     Active Substance: AMLODIPINE BESYLATE
     Dosage: 5 DF, 2X/DAY (ONCE IN THE MORNING, ONCE IN THE EVENING)
     Route: 065
     Dates: start: 200803
  21. L?THYROX HEXAL [Suspect]
     Active Substance: LEVOTHYROXINE SODIUM
     Dosage: UNK
     Route: 048
     Dates: start: 20180524
  22. PANTOPRAZOLE [Concomitant]
     Active Substance: PANTOPRAZOLE
     Route: 065
  23. L?THYROXIN?HENNING [Concomitant]
     Active Substance: LEVOTHYROXINE SODIUM
     Route: 065
     Dates: start: 199003, end: 2018
  24. HALOPERIDOL NEURAXPHARM [Concomitant]
     Active Substance: HALOPERIDOL
     Dosage: 30 ML
     Route: 065
     Dates: start: 201902
  25. PARACETAMOL [Concomitant]
     Active Substance: ACETAMINOPHEN
     Dosage: 1000 MG
     Route: 065
     Dates: start: 201903
  26. MOMETASONE [Concomitant]
     Active Substance: MOMETASONE
     Dosage: 1 MG/G
     Route: 065
  27. BISOPROLOL PLUS 1 A PHARMA [Suspect]
     Active Substance: BISOPROLOL FUMARATE\HYDROCHLOROTHIAZIDE
     Route: 065
     Dates: start: 2014, end: 2018
  28. PREDNISOLONE. [Suspect]
     Active Substance: PREDNISOLONE
     Route: 065
  29. FERROSANOL [Concomitant]
     Active Substance: FERROUS GLUCONATE
     Dosage: 1 DF, QD (1X DAILY (MORNING)
     Route: 065
  30. L?THYROXIN?HENNING [Concomitant]
     Active Substance: LEVOTHYROXINE SODIUM
     Route: 065
     Dates: start: 2016

REACTIONS (9)
  - Suicidal ideation [Fatal]
  - Clear cell renal cell carcinoma [Fatal]
  - Adenoma benign [Recovered/Resolved]
  - Renal neoplasm [Fatal]
  - Metastases to lung [Fatal]
  - Renal cancer [Fatal]
  - Metastases to central nervous system [Unknown]
  - Metastatic renal cell carcinoma [Not Recovered/Not Resolved]
  - Brain oedema [Unknown]

NARRATIVE: CASE EVENT DATE: 2008
